FAERS Safety Report 5472493-2 (Version None)
Quarter: 2007Q3

REPORT INFORMATION
  Report Type: 
  Country: None (occurrence: None)
  Receive Date: 20070926
  Receipt Date: 20070910
  Transmission Date: 20080115
  Serious: Yes (Life-Threatening, Hospitalization, Disabling, Other)
  Sender: FDA-Public Use
  Company Number: 07092249

PATIENT
  Age: 40 Year
  Sex: Male

DRUGS (2)
  1. CARBAMAZEPINE [Suspect]
     Dosage: ORAL
     Route: 048
  2. ACYCLOVIR [Concomitant]

REACTIONS (3)
  - ENCEPHALITIS HERPES [None]
  - GRAND MAL CONVULSION [None]
  - HYPOGAMMAGLOBULINAEMIA [None]
